FAERS Safety Report 4193976 (Version 3)
Quarter: 2020Q1

REPORT INFORMATION
  Report Type: Report from Study
  Country: DE (occurrence: DE)
  Receive Date: 20040820
  Receipt Date: 20200221
  Transmission Date: 20200409
  Serious: Yes (Hospitalization)
  Sender: FDA-Public Use
  Company Number: DE-ROCHE-377427

PATIENT
  Age: 35 Year
  Sex: Male

DRUGS (3)
  1. INTERFERON ALFA-2A [Suspect]
     Active Substance: INTERFERON ALFA-2A
     Indication: MALIGNANT MELANOMA
     Route: 058
     Dates: start: 20020802, end: 200303
  2. PARACETAMOL [Concomitant]
     Active Substance: ACETAMINOPHEN
     Route: 065
  3. INTERFERON ALFA-2A [Suspect]
     Active Substance: INTERFERON ALFA-2A
     Dosage: THERAPY WAS PAUSED DURING THIS TIMEFRAME FOR ONE APPLICATION DUE TO AN ADVERSE EVENT.
     Route: 058
     Dates: start: 200306, end: 20031027

REACTIONS (8)
  - Abdominal distension [Recovered/Resolved]
  - Nausea [Recovered/Resolved]
  - Loss of consciousness [Recovered/Resolved]
  - Fatigue [Recovered/Resolved]
  - Asthenia [Recovered/Resolved]
  - Liver function test abnormal [Recovered/Resolved]
  - Dizziness [Recovered/Resolved]
  - Hepatic function abnormal [Recovered/Resolved]

NARRATIVE: CASE EVENT DATE: 20030616
